FAERS Safety Report 19623696 (Version 1)
Quarter: 2021Q3

REPORT INFORMATION
  Report Type: Other
  Country: CN (occurrence: CN)
  Receive Date: 20210728
  Receipt Date: 20210728
  Transmission Date: 20211014
  Serious: Yes (Other)
  Sender: FDA-Public Use
  Company Number: CN-ROCHE-2876891

PATIENT

DRUGS (3)
  1. METHYLPREDNISOLONE. [Suspect]
     Active Substance: METHYLPREDNISOLONE
     Indication: GLOMERULONEPHRITIS MEMBRANOUS
     Dosage: WITH AN INITIAL DOSE OF 0.8 MG/KG PER DAY. AFTER 2 MONTHS OF USE, GRADUALLY REDUCE THE DOSE ACCORDIN
     Route: 065
  2. CYCLOPHOSPHAMIDE. [Suspect]
     Active Substance: CYCLOPHOSPHAMIDE
     Indication: GLOMERULONEPHRITIS MEMBRANOUS
     Dosage: THE DOSAGE WAS 0.5?1.0 G PER TIME, TREATED FOR 6 MONTHS (INTRAVENOUS PULSE THERAPY; 50G/VIAL)
     Route: 042
  3. RITUXIMAB. [Suspect]
     Active Substance: RITUXIMAB
     Indication: GLOMERULONEPHRITIS MEMBRANOUS
     Dosage: TREATED FOR 6 MONTHS (50ML:500MG)
     Route: 041

REACTIONS (1)
  - Renal impairment [Unknown]
